FAERS Safety Report 4712887-3 (Version None)
Quarter: 2005Q3

REPORT INFORMATION
  Report Type: 
  Country: None (occurrence: None)
  Receive Date: 20050712
  Receipt Date: 20050712
  Transmission Date: 20060218
  Serious: Yes (Hospitalization)
  Sender: FDA-Public Use
  Company Number: None

PATIENT
  Age: 87 Year
  Sex: Female

DRUGS (11)
  1. LEVAQUIN [Suspect]
     Indication: URINARY TRACT INFECTION
     Dosage: ONCE   ORAL
     Route: 048
     Dates: start: 20050403, end: 20050403
  2. MULTI-VITAMIN [Concomitant]
  3. DITROPAN SL [Concomitant]
  4. FLONASE [Concomitant]
  5. FUROSEMIDE [Concomitant]
  6. LEVOTHYROXINE [Concomitant]
  7. THEOGEN DROPS [Concomitant]
  8. LIDODERM [Concomitant]
  9. NORVASC [Concomitant]
  10. CALCIUM GLUCONATE [Concomitant]
  11. PAXIL [Concomitant]

REACTIONS (3)
  - DYSPNOEA [None]
  - RASH [None]
  - SWOLLEN TONGUE [None]
